FAERS Safety Report 24463066 (Version 1)
Quarter: 2024Q4

REPORT INFORMATION
  Report Type: Report from Study
  Country: US (occurrence: US)
  Receive Date: 20241018
  Receipt Date: 20241018
  Transmission Date: 20250114
  Serious: No
  Sender: ROCHE
  Company Number: US-ROCHE-2585041

PATIENT
  Age: 10 Year
  Sex: Female

DRUGS (2)
  1. XOLAIR [Suspect]
     Active Substance: OMALIZUMAB
     Indication: Idiopathic urticaria
     Dosage: INJECT 300MG,  ANTICIPATED DATE OF TREATMENT: /MAR/2023.
     Route: 058
     Dates: start: 20230411, end: 20240411
  2. XOLAIR [Suspect]
     Active Substance: OMALIZUMAB
     Route: 058

REACTIONS (3)
  - Off label use [Unknown]
  - Urticaria [Not Recovered/Not Resolved]
  - Dyspnoea [Unknown]
